FAERS Safety Report 22276579 (Version 7)
Quarter: 2024Q1

REPORT INFORMATION
  Report Type: Spontaneous
  Country: US (occurrence: US)
  Receive Date: 20230503
  Receipt Date: 20240117
  Transmission Date: 20240410
  Serious: No
  Sender: FDA-Public Use
  Company Number: US-BRISTOL-MYERS SQUIBB COMPANY-2023-062847

PATIENT
  Age: 66 Year
  Sex: Female

DRUGS (1)
  1. ORENCIA [Suspect]
     Active Substance: ABATACEPT
     Indication: Rheumatoid arthritis
     Route: 058

REACTIONS (7)
  - Chronic obstructive pulmonary disease [Unknown]
  - Arthralgia [Unknown]
  - Chest pain [Unknown]
  - Back pain [Unknown]
  - Pelvic pain [Unknown]
  - Rash [Unknown]
  - Psoriasis [Unknown]

NARRATIVE: CASE EVENT DATE: 20230501
